FAERS Safety Report 24955363 (Version 1)
Quarter: 2025Q1

REPORT INFORMATION
  Report Type: Spontaneous
  Country: NZ (occurrence: None)
  Receive Date: 20250210
  Receipt Date: 20250210
  Transmission Date: 20250409
  Serious: Yes (Other)
  Sender: FDA-CTU
  Company Number: None

PATIENT
  Age: 69 Year
  Sex: Female
  Weight: 54 kg

DRUGS (4)
  1. METRONIDAZOLE [Suspect]
     Active Substance: METRONIDAZOLE
     Indication: Infection
     Dosage: OTHER QUANTITY : 21 TABLET(S);?FREQUENCY : 3 TIMES A DAY;?
     Route: 048
  2. Levothyrosine [Concomitant]
  3. VITAMIN D [Concomitant]
     Active Substance: VITAMIN D NOS
  4. Women multivitamin [Concomitant]

REACTIONS (4)
  - Dyspnoea [None]
  - Paraesthesia [None]
  - Chest discomfort [None]
  - Fatigue [None]

NARRATIVE: CASE EVENT DATE: 20250208
